FAERS Safety Report 6568476-1 (Version None)
Quarter: 2010Q1

REPORT INFORMATION
  Report Type: 
  Country: None (occurrence: None)
  Receive Date: 20100203
  Receipt Date: 20100128
  Transmission Date: 20100710
  Serious: Yes (Death)
  Sender: FDA-Public Use
  Company Number: B0580655A

PATIENT
  Age: 38 Week
  Sex: Female
  Weight: 2.7 kg

DRUGS (3)
  1. COMBIVIR [Suspect]
     Dates: start: 20081028
  2. KALETRA [Suspect]
     Dates: start: 20081028
  3. LOMOTIL [Concomitant]
     Dates: start: 20081101

REACTIONS (2)
  - STILLBIRTH [None]
  - UMBILICAL CORD VASCULAR DISORDER [None]
